FAERS Safety Report 7450488-7 (Version None)
Quarter: 2011Q2

REPORT INFORMATION
  Report Type: 
  Country: None (occurrence: None)
  Receive Date: 20110502
  Receipt Date: 20110418
  Transmission Date: 20111010
  Serious: Yes (Other)
  Sender: FDA-Public Use
  Company Number: PHHY2011US32836

PATIENT
  Sex: Male

DRUGS (8)
  1. TASIGNA [Suspect]
     Indication: CHRONIC MYELOID LEUKAEMIA
     Dosage: 150 MG, BID
     Route: 048
  2. ZOLOFT [Concomitant]
     Dosage: UNK MG, UNK
  3. FINASTERIDE [Concomitant]
  4. TOPROL-XL [Concomitant]
  5. STALEVO 100 [Concomitant]
     Dosage: UNK
  6. DIGOXIN [Concomitant]
  7. OXYBUTYNIN [Concomitant]
  8. ALTACE [Concomitant]

REACTIONS (6)
  - PAIN [None]
  - TREMOR [None]
  - HEADACHE [None]
  - OROPHARYNGEAL PAIN [None]
  - FAECES PALE [None]
  - INSOMNIA [None]
